FAERS Safety Report 5363291-9 (Version None)
Quarter: 2007Q2

REPORT INFORMATION
  Report Type: 
  Country: None (occurrence: None)
  Receive Date: 20070620
  Receipt Date: 20070612
  Transmission Date: 20071010
  Serious: Yes (Hospitalization)
  Sender: FDA-Public Use
  Company Number: GR-JNJFOC-20070603366

PATIENT
  Age: 78 Year
  Sex: Male
  Weight: 82 kg

DRUGS (8)
  1. CAELYX [Suspect]
     Indication: ANAEMIA HAEMOLYTIC AUTOIMMUNE
     Route: 042
  2. CAELYX [Suspect]
     Indication: B-CELL SMALL LYMPHOCYTIC LYMPHOMA
     Route: 042
  3. RITUXIMAB [Concomitant]
     Indication: ANAEMIA HAEMOLYTIC AUTOIMMUNE
     Route: 042
  4. RITUXIMAB [Concomitant]
     Indication: B-CELL SMALL LYMPHOCYTIC LYMPHOMA
     Route: 042
  5. ONCOVIN [Concomitant]
     Indication: ANAEMIA HAEMOLYTIC AUTOIMMUNE
     Route: 042
  6. ONCOVIN [Concomitant]
     Indication: B-CELL SMALL LYMPHOCYTIC LYMPHOMA
     Route: 042
  7. ENDOXAN [Concomitant]
     Indication: ANAEMIA HAEMOLYTIC AUTOIMMUNE
     Route: 042
  8. ENDOXAN [Concomitant]
     Indication: B-CELL SMALL LYMPHOCYTIC LYMPHOMA
     Route: 042

REACTIONS (3)
  - ANOREXIA [None]
  - MALAISE [None]
  - PALMAR-PLANTAR ERYTHRODYSAESTHESIA SYNDROME [None]
